FAERS Safety Report 10690449 (Version 1)
Quarter: 2015Q1

REPORT INFORMATION
  Report Type: Spontaneous
  Country: US (occurrence: None)
  Receive Date: 20150102
  Receipt Date: 20150102
  Transmission Date: 20150720
  Serious: Yes (Other)
  Sender: FDA-Public Use
  Company Number: None

PATIENT
  Age: 75 Year
  Sex: Male
  Weight: 70.31 kg

DRUGS (13)
  1. MULTI VIT [Concomitant]
  2. AMANTADINE [Concomitant]
     Active Substance: AMANTADINE
  3. VITAMIN D3 [Concomitant]
     Active Substance: CHOLECALCIFEROL
  4. SINAMET [Concomitant]
  5. LEVOTHYROXIN [Concomitant]
     Active Substance: LEVOTHYROXINE
  6. VITAMIN C [Concomitant]
     Active Substance: ASCORBIC ACID
  7. CEFAZOLIN [Suspect]
     Active Substance: CEFAZOLIN
     Indication: OSTEOMYELITIS
     Dosage: 3X^S/DAY INFUSION
     Dates: start: 20140607, end: 20140619
  8. LIVATHYROXINE [Concomitant]
  9. HUMALOG + LANTIS [Concomitant]
  10. FLOMAX [Concomitant]
     Active Substance: TAMSULOSIN HYDROCHLORIDE
  11. ALAPURINAL [Concomitant]
  12. VITAMIN C [Concomitant]
     Active Substance: ASCORBIC ACID
  13. INSULIN [Concomitant]
     Active Substance: INSULIN NOS

REACTIONS (2)
  - Coordination abnormal [None]
  - Muscular weakness [None]

NARRATIVE: CASE EVENT DATE: 20140908
